FAERS Safety Report 11159759 (Version 3)
Quarter: 2016Q1

REPORT INFORMATION
  Report Type: Spontaneous
  Country: US (occurrence: US)
  Receive Date: 20150603
  Receipt Date: 20160125
  Transmission Date: 20160525
  Serious: No
  Sender: FDA-Public Use
  Company Number: US-UNITED THERAPEUTICS-UNT-2015-006413

PATIENT
  Age: 64 Year
  Sex: Female
  Weight: 54.42 kg

DRUGS (16)
  1. REMODULIN [Suspect]
     Active Substance: TREPROSTINIL
     Indication: PULMONARY ARTERIAL HYPERTENSION
     Dosage: 0.019 ?G/KG/MIN, CONTINUING
     Route: 058
     Dates: start: 20130627
  2. ORENITRAM [Suspect]
     Active Substance: TREPROSTINIL
     Dosage: 0.25 MG, UNK
  3. REMODULIN [Suspect]
     Active Substance: TREPROSTINIL
     Dosage: 0.030 ?G/KG/MIN,CONTINUING
     Route: 058
     Dates: start: 20130909
  4. ORENITRAM [Suspect]
     Active Substance: TREPROSTINIL
     Dosage: 2 MG, Q8H
     Route: 048
     Dates: start: 20150511
  5. ORENITRAM [Suspect]
     Active Substance: TREPROSTINIL
     Dosage: 2 MG,TID
     Route: 048
     Dates: start: 20150511
  6. ADCIRCA [Concomitant]
     Active Substance: TADALAFIL
     Indication: PRODUCT USED FOR UNKNOWN INDICATION
  7. ORENITRAM [Suspect]
     Active Substance: TREPROSTINIL
     Dosage: 1.125 MG, Q8H
     Route: 048
     Dates: start: 20150511
  8. ORENITRAM [Suspect]
     Active Substance: TREPROSTINIL
     Dosage: 1 MG, TID
     Route: 048
     Dates: start: 20150511
  9. ORENITRAM [Suspect]
     Active Substance: TREPROSTINIL
     Dosage: 1.625 MG, TID
     Route: 048
     Dates: start: 20150511
  10. ORENITRAM [Suspect]
     Active Substance: TREPROSTINIL
     Dosage: UNK
     Route: 048
  11. LETAIRIS [Concomitant]
     Active Substance: AMBRISENTAN
     Indication: PRODUCT USED FOR UNKNOWN INDICATION
  12. ORENITRAM [Suspect]
     Active Substance: TREPROSTINIL
     Dosage: UNK
     Route: 048
  13. REVATIO [Concomitant]
     Active Substance: SILDENAFIL CITRATE
     Indication: PRODUCT USED FOR UNKNOWN INDICATION
  14. REMODULIN [Suspect]
     Active Substance: TREPROSTINIL
     Dosage: 0.030 ?G/KG, CONTINUING
     Route: 041
     Dates: start: 20130909
  15. REMODULIN [Suspect]
     Active Substance: TREPROSTINIL
     Dosage: 0.022 ?G/KG/MIN, CONTINUING
     Route: 058
     Dates: start: 20130909
  16. ORENITRAM [Suspect]
     Active Substance: TREPROSTINIL
     Indication: PULMONARY ARTERIAL HYPERTENSION
     Dosage: 0.875 MG, TID
     Route: 048
     Dates: start: 20150501

REACTIONS (12)
  - Diarrhoea [Not Recovered/Not Resolved]
  - Dyspnoea [Unknown]
  - Sluggishness [Unknown]
  - Headache [Unknown]
  - Weight increased [Unknown]
  - Palpitations [Unknown]
  - Decreased appetite [Unknown]
  - Rhonchi [Unknown]
  - Fatigue [Unknown]
  - Nausea [Unknown]
  - Hypoaesthesia [Not Recovered/Not Resolved]
  - Infusion site vesicles [Unknown]

NARRATIVE: CASE EVENT DATE: 201505
